FAERS Safety Report 15864950 (Version 1)
Quarter: 2019Q1

REPORT INFORMATION
  Report Type: Spontaneous
  Country: GB (occurrence: GB)
  Receive Date: 20190124
  Receipt Date: 20190124
  Transmission Date: 20190417
  Serious: Yes (Other)
  Sender: FDA-Public Use
  Company Number: PHHY2019GB016623

PATIENT
  Age: 49 Year
  Sex: Female
  Weight: 101.6 kg

DRUGS (2)
  1. CODEINE PHOSPHATE [Suspect]
     Active Substance: CODEINE PHOSPHATE
     Indication: PAIN
     Dosage: UNK (MINIMUM DOSAGE OF EITHER)
     Route: 048
  2. ORAMORPH [Suspect]
     Active Substance: MORPHINE SULFATE
     Indication: PAIN
     Dosage: UNK (MINIMUM DOSAGE OF EITHER)
     Route: 048

REACTIONS (4)
  - Abdominal rigidity [Recovered/Resolved]
  - Asthenia [Unknown]
  - Abdominal pain [Recovered/Resolved]
  - Feeling hot [Unknown]
